FAERS Safety Report 11912348 (Version 1)
Quarter: 2016Q1

REPORT INFORMATION
  Report Type: Spontaneous
  Country: US (occurrence: US)
  Receive Date: 20160113
  Receipt Date: 20160113
  Transmission Date: 20160526
  Serious: Yes (Other)
  Sender: FDA-Public Use
  Company Number: US-ALKEM-000793

PATIENT
  Age: 45 Year
  Sex: Female
  Weight: 75 kg

DRUGS (1)
  1. GABAPENTIN ASCEND LAB [Suspect]
     Active Substance: GABAPENTIN
     Indication: PAIN
     Dosage: 1 CAPSULE AT BEDTIME
     Dates: start: 201412, end: 20141123

REACTIONS (5)
  - Depression [Recovering/Resolving]
  - Suicidal ideation [Recovering/Resolving]
  - Fatigue [Recovering/Resolving]
  - Alopecia [Recovering/Resolving]
  - Chest pain [Recovering/Resolving]

NARRATIVE: CASE EVENT DATE: 20141123
